FAERS Safety Report 9330535 (Version 1)
Quarter: 2013Q2

REPORT INFORMATION
  Report Type: Spontaneous
  Country: US (occurrence: US)
  Receive Date: 20130605
  Receipt Date: 20130605
  Transmission Date: 20140414
  Serious: Yes (Hospitalization)
  Sender: FDA-Public Use
  Company Number: US-SHIRE-ALL1-2013-03456

PATIENT
  Age: 12 Year
  Sex: Male
  Weight: 69.8 kg

DRUGS (8)
  1. VYVANSE [Suspect]
     Indication: AFFECTIVE DISORDER
     Dosage: 20 MG, 1X/DAY:QD (EVERY MORNING)
     Route: 048
     Dates: start: 20130123, end: 20130325
  2. VYVANSE [Suspect]
     Dosage: 40 MG, 1X/DAY:QD (IN THE MORNING)
     Route: 048
     Dates: start: 20130326
  3. VYVANSE [Suspect]
     Dosage: 20 MG, 1X/DAY:QD (AT LUNCH)
     Route: 048
     Dates: start: 20130326
  4. PROZAC [Suspect]
     Indication: AFFECTIVE DISORDER
     Dosage: 10 MG, 1X/DAY:QD
     Route: 048
     Dates: start: 20121108
  5. DESYREL [Suspect]
     Indication: SLEEP DISORDER
     Dosage: 12.5 MG, 1X/DAY:QD (NIGHTLY)
     Route: 048
     Dates: start: 20130108
  6. DEPAKOTE [Suspect]
     Indication: AFFECTIVE DISORDER
     Dosage: 300 MG, 2X/DAY:BID
     Route: 048
     Dates: start: 20120301, end: 20130325
  7. DEPAKOTE [Suspect]
     Dosage: 500 MG, 2X/DAY:BID
     Route: 048
     Dates: start: 20130326
  8. CATAPRES [Suspect]
     Indication: AFFECTIVE DISORDER
     Dosage: 0.2 MG, 1X/DAY:QD (NIGHTLY)
     Route: 048
     Dates: start: 20120301

REACTIONS (8)
  - Suicidal ideation [Recovered/Resolved]
  - Affective disorder [Recovered/Resolved]
  - Condition aggravated [Recovered/Resolved]
  - Aggression [Recovered/Resolved]
  - Refusal of treatment by patient [Recovered/Resolved]
  - Drug prescribing error [Not Recovered/Not Resolved]
  - Off label use [Not Recovered/Not Resolved]
  - Off label use [None]
